FAERS Safety Report 25014379 (Version 2)
Quarter: 2025Q1

REPORT INFORMATION
  Report Type: Spontaneous
  Country: DE (occurrence: DE)
  Receive Date: 20250226
  Receipt Date: 20250312
  Transmission Date: 20250409
  Serious: Yes (Hospitalization, Other)
  Sender: BRISTOL-MYERS SQUIBB COMPANY
  Company Number: DE-KRKA-DE2025K01984SPO

PATIENT
  Age: 83 Year
  Sex: Male
  Weight: 76 kg

DRUGS (14)
  1. ELIQUIS [Suspect]
     Active Substance: APIXABAN
     Indication: Product used for unknown indication
     Dosage: 5 MG, 2X PER DAY (1-0-1)
  2. CANDESARTAN [Suspect]
     Active Substance: CANDESARTAN
     Indication: Dizziness
     Dosage: 4 MG, 2X PER DAY, ONE HALF IN THE MORNING THE OTHER IN THE EVENING
     Route: 048
     Dates: start: 2020
  3. CANDESARTAN [Suspect]
     Active Substance: CANDESARTAN
     Indication: Hypertension
  4. CANDESARTAN [Suspect]
     Active Substance: CANDESARTAN
     Indication: Thrombosis
  5. BISOPROLOL [Suspect]
     Active Substance: BISOPROLOL
     Indication: Tachycardia
     Dosage: 5 MG, 2X PER DAY
  6. ATORVASTATIN CALCIUM\EZETIMIBE [Suspect]
     Active Substance: ATORVASTATIN CALCIUM\EZETIMIBE
     Indication: Dizziness
     Dosage: 1 DOSAGE FORM, 1X PER DAY LATE IN THE EVENING
  7. ATORVASTATIN CALCIUM\EZETIMIBE [Suspect]
     Active Substance: ATORVASTATIN CALCIUM\EZETIMIBE
     Indication: Thrombosis
  8. EPLERENONE [Suspect]
     Active Substance: EPLERENONE
     Indication: Dizziness
     Dosage: 25 MG, 1X PER DAY IN THE MORNING
  9. EPLERENONE [Suspect]
     Active Substance: EPLERENONE
     Indication: Hypertension
  10. EPLERENONE [Suspect]
     Active Substance: EPLERENONE
     Indication: Tachycardia
  11. EPLERENONE [Suspect]
     Active Substance: EPLERENONE
     Indication: Thrombosis
  12. JARDIANCE [Suspect]
     Active Substance: EMPAGLIFLOZIN
     Indication: Diabetes mellitus
     Dosage: 10 MG, 1X PER DAY LATE IN THE EVENING
  13. JARDIANCE [Suspect]
     Active Substance: EMPAGLIFLOZIN
     Indication: Tachycardia
  14. JARDIANCE [Suspect]
     Active Substance: EMPAGLIFLOZIN
     Indication: Cardiovascular event prophylaxis

REACTIONS (4)
  - Pulmonary oedema [Recovered/Resolved]
  - Dyspnoea [Unknown]
  - Hypoacusis [Not Recovered/Not Resolved]
  - Tendon rupture [Unknown]

NARRATIVE: CASE EVENT DATE: 20220506
